FAERS Safety Report 8440633-9 (Version None)
Quarter: 2012Q2

REPORT INFORMATION
  Report Type: 
  Country: None (occurrence: None)
  Receive Date: 20120615
  Receipt Date: 20120531
  Transmission Date: 20120825
  Serious: Yes (Hospitalization, Disabling, Other)
  Sender: FDA-Public Use
  Company Number: FR-MERCK-0705FRA00016

PATIENT
  Age: 69 Year
  Sex: Female

DRUGS (11)
  1. TRAMADOL HYDROCHLORIDE [Concomitant]
     Indication: ARTHRALGIA
     Route: 048
  2. FOSAMAX PLUS D [Suspect]
     Indication: OSTEOPOROSIS
     Route: 048
     Dates: start: 20060801, end: 20070301
  3. DIAZEPAM [Concomitant]
     Route: 048
  4. FOSAMAX [Suspect]
     Indication: OSTEOPOROSIS
     Route: 048
     Dates: start: 20041201, end: 20060801
  5. VITAMIN D (UNSPECIFIED) [Concomitant]
     Indication: OSTEOPOROSIS
     Route: 048
     Dates: end: 20060801
  6. ACEBUTOLOL HYDROCHLORIDE [Concomitant]
     Indication: HYPERTENSION
     Route: 048
  7. ACEPROMETAZINE MALEATE AND MEPROBAMATE [Concomitant]
     Route: 048
  8. DICLOFENAC [Concomitant]
     Indication: ARTHRALGIA
     Route: 048
  9. CALCIUM (UNSPECIFIED) [Concomitant]
     Indication: OSTEOPOROSIS
     Route: 048
     Dates: end: 20060801
  10. OMEPRAZOLE [Concomitant]
     Route: 048
     Dates: start: 20060802
  11. HYZAAR [Concomitant]
     Indication: HYPERTENSION
     Route: 048

REACTIONS (4)
  - OSTEONECROSIS OF JAW [None]
  - FOOT DEFORMITY [None]
  - ARTHRALGIA [None]
  - MUSCULOSKELETAL PAIN [None]
